FAERS Safety Report 9062529 (Version 1)
Quarter: 2013Q1

REPORT INFORMATION
  Report Type: Spontaneous
  Country: US (occurrence: US)
  Receive Date: 20130111
  Receipt Date: 20130111
  Transmission Date: 20140127
  Serious: No
  Sender: FDA-Public Use
  Company Number: US-VIIV HEALTHCARE LIMITED-A0980132A

PATIENT
  Sex: Female

DRUGS (7)
  1. COMBIVIR [Suspect]
     Indication: HIV INFECTION
     Route: 048
  2. SELZENTRY [Suspect]
     Indication: HIV INFECTION
     Dosage: 300MG TWICE PER DAY
     Route: 048
  3. ISENTRESS [Concomitant]
  4. PLAVIX [Concomitant]
  5. ASPIRIN [Concomitant]
  6. IMDUR [Concomitant]
  7. ENALAPRIL [Concomitant]

REACTIONS (2)
  - Rash [Not Recovered/Not Resolved]
  - Contusion [Not Recovered/Not Resolved]
